FAERS Safety Report 11973608 (Version 1)
Quarter: 2016Q1

REPORT INFORMATION
  Report Type: Report from Study
  Country: US (occurrence: US)
  Receive Date: 20160128
  Receipt Date: 20160128
  Transmission Date: 20160526
  Serious: Yes (Other)
  Sender: FDA-Public Use
  Company Number: US-ABBVIE-15K-163-1399903-00

PATIENT
  Age: 32 Year
  Sex: Female
  Weight: 81.72 kg

DRUGS (4)
  1. MULTIVITAMIN [Concomitant]
     Active Substance: VITAMINS
     Indication: VITAMIN SUPPLEMENTATION
  2. HUMIRA [Suspect]
     Active Substance: ADALIMUMAB
     Dosage: TWO WEEKS AFTER 80MG DOSE
     Route: 058
     Dates: start: 2014
  3. NUVARING [Concomitant]
     Active Substance: ETHINYL ESTRADIOL\ETONOGESTREL
     Indication: CONTRACEPTION
  4. HUMIRA [Suspect]
     Active Substance: ADALIMUMAB
     Indication: COLITIS ULCERATIVE
     Route: 058
     Dates: start: 201402, end: 201402

REACTIONS (2)
  - Injection site pain [Not Recovered/Not Resolved]
  - Breast cancer female [Not Recovered/Not Resolved]

NARRATIVE: CASE EVENT DATE: 201402
